FAERS Safety Report 10085812 (Version 1)
Quarter: 2014Q2

REPORT INFORMATION
  Report Type: Spontaneous
  Country: US (occurrence: US)
  Receive Date: 20140418
  Receipt Date: 20140418
  Transmission Date: 20141212
  Serious: No
  Sender: FDA-Public Use
  Company Number: US-PFIZER INC-2014103860

PATIENT
  Age: 75 Year
  Sex: Male
  Weight: 77.1 kg

DRUGS (2)
  1. LATANOPROST [Suspect]
     Indication: GLAUCOMA
     Dosage: UNK, 2X/DAY
  2. TIMOLOL MALEATE [Suspect]
     Indication: GLAUCOMA
     Dosage: UNK, DAILY

REACTIONS (1)
  - Drug ineffective [Unknown]
